FAERS Safety Report 5926180-4 (Version None)
Quarter: 2008Q4

REPORT INFORMATION
  Report Type: 
  Country: None (occurrence: None)
  Receive Date: 20081017
  Receipt Date: 20080929
  Transmission Date: 20090506
  Serious: Yes (Hospitalization, Other)
  Sender: FDA-Public Use
  Company Number: 035073

PATIENT
  Age: 8 Week
  Sex: Male

DRUGS (1)
  1. TRAMADOL HYDROCHLORIDE [Suspect]
     Dosage: ORAL
     Route: 048

REACTIONS (10)
  - CLONUS [None]
  - CONVULSION [None]
  - DRUG ADMINISTRATION ERROR [None]
  - DYSKINESIA [None]
  - DYSTONIA [None]
  - GAZE PALSY [None]
  - GRUNTING [None]
  - MENTAL STATUS CHANGES [None]
  - MUSCULOSKELETAL STIFFNESS [None]
  - RESPIRATORY ACIDOSIS [None]
